FAERS Safety Report 20302065 (Version 1)
Quarter: 2022Q1

REPORT INFORMATION
  Report Type: Spontaneous
  Country: US (occurrence: None)
  Receive Date: 20220105
  Receipt Date: 20220105
  Transmission Date: 20220423
  Serious: No
  Sender: FDA-Public Use
  Company Number: 2021A896109

PATIENT
  Age: 53 Year
  Sex: Female
  Weight: 78 kg

DRUGS (1)
  1. SYMBICORT [Suspect]
     Active Substance: BUDESONIDE\FORMOTEROL FUMARATE DIHYDRATE
     Indication: Asthma
     Dosage: 160/4.5MCG. 2 PUFFS TWICE DAILY
     Route: 055
     Dates: start: 2006

REACTIONS (5)
  - Ejection fraction decreased [Unknown]
  - Cardiac disorder [Unknown]
  - Bronchitis [Unknown]
  - Memory impairment [Unknown]
  - Visual impairment [Unknown]

NARRATIVE: CASE EVENT DATE: 20080101
